FAERS Safety Report 4524194-2 (Version None)
Quarter: 2004Q4

REPORT INFORMATION
  Report Type: 
  Country: None (occurrence: None)
  Receive Date: 20041209
  Receipt Date: 20041124
  Transmission Date: 20050328
  Serious: Yes (Death, Hospitalization)
  Sender: FDA-Public Use
  Company Number: D01200400190

PATIENT
  Age: 56 Year
  Sex: Male
  Weight: 65 kg

DRUGS (9)
  1. CISPLATIN [Suspect]
     Indication: SMALL CELL LUNG CANCER EXTENSIVE STAGE
     Dosage: 80 MG/M2 CONT - INTRAVENOUS NOS
     Route: 042
     Dates: start: 20040106, end: 20040106
  2. ETOPOSIDE [Suspect]
     Indication: SMALL CELL LUNG CANCER EXTENSIVE STAGE
     Dosage: 120 MG/M2 GIVEN ON DAYS 1, 2 AND 3, IN A 30MINUTE INFUSION - INTRAVENOUS NOS
     Route: 042
     Dates: start: 20040106, end: 20040108
  3. INSULIN HUMAN [Concomitant]
  4. ISOPHANE INSULIN [Concomitant]
  5. TRAMADOL HCL [Concomitant]
  6. RANITIDINE HYDROCHLORIDE [Concomitant]
  7. FUROSEMIDE [Concomitant]
  8. DICLOFENAC [Concomitant]
  9. METHYLPREDNISOLONE SODIUM SUCCINATE [Concomitant]

REACTIONS (6)
  - AGRANULOCYTOSIS [None]
  - CARDIOPULMONARY FAILURE [None]
  - DISORIENTATION [None]
  - FEBRILE NEUTROPENIA [None]
  - METABOLIC DISORDER [None]
  - PNEUMONIA [None]
